FAERS Safety Report 5725676-8 (Version None)
Quarter: 2008Q2

REPORT INFORMATION
  Report Type: 
  Country: None (occurrence: None)
  Receive Date: 20080501
  Receipt Date: 20080424
  Transmission Date: 20081010
  Serious: Yes (Other)
  Sender: FDA-Public Use
  Company Number: JP-GILEAD-2008-0016131

PATIENT
  Sex: Male

DRUGS (10)
  1. TRUVADA [Suspect]
     Indication: HIV INFECTION
     Route: 048
     Dates: start: 20071205, end: 20071217
  2. TRUVADA [Suspect]
     Dates: start: 20071230, end: 20071230
  3. VIREAD [Suspect]
     Indication: HIV INFECTION
     Route: 048
     Dates: start: 20080110, end: 20080110
  4. REYATAZ [Concomitant]
     Indication: HIV INFECTION
     Dates: start: 20071205, end: 20071217
  5. REYATAZ [Concomitant]
     Dates: start: 20080110, end: 20080110
  6. NORVIR [Concomitant]
     Indication: HIV INFECTION
     Dates: start: 20071205, end: 20071217
  7. NORVIR [Concomitant]
     Dates: start: 20080110, end: 20080110
  8. BAKTAR [Concomitant]
     Dates: start: 20071122
  9. MAGNESIUM OXIDE [Concomitant]
     Dates: start: 20071212
  10. EPIVIR [Concomitant]
     Indication: HIV INFECTION
     Route: 048
     Dates: start: 20080110, end: 20080110

REACTIONS (6)
  - MALAISE [None]
  - PURPURA [None]
  - PYREXIA [None]
  - RASH GENERALISED [None]
  - RENAL DISORDER [None]
  - VOMITING [None]
